FAERS Safety Report 11489357 (Version 7)
Quarter: 2017Q2

REPORT INFORMATION
  Report Type: Report from Study
  Country: CA (occurrence: CA)
  Receive Date: 20150910
  Receipt Date: 20170525
  Transmission Date: 20170829
  Serious: Yes (Other)
  Sender: FDA-Public Use
  Company Number: CA-ROCHE-1605595

PATIENT
  Age: 22 Year
  Sex: Female

DRUGS (6)
  1. ACTEMRA [Suspect]
     Active Substance: TOCILIZUMAB
     Indication: RHEUMATOID ARTHRITIS
     Route: 042
     Dates: start: 20150220
  2. ACTEMRA [Suspect]
     Active Substance: TOCILIZUMAB
     Indication: JUVENILE IDIOPATHIC ARTHRITIS
  3. CELEBREX [Concomitant]
     Active Substance: CELECOXIB
     Dosage: WHEN NEEDED
     Route: 065
  4. HUMIRA [Concomitant]
     Active Substance: ADALIMUMAB
  5. MELOXICAM. [Concomitant]
     Active Substance: MELOXICAM
     Route: 048
  6. TRAMADOL. [Concomitant]
     Active Substance: TRAMADOL
     Dosage: WHEN NEEDED
     Route: 065

REACTIONS (6)
  - White blood cell count decreased [Unknown]
  - Hypotension [Unknown]
  - Pneumonia [Recovered/Resolved]
  - Blood pressure diastolic decreased [Unknown]
  - Malaise [Unknown]
  - Oxygen saturation decreased [Unknown]

NARRATIVE: CASE EVENT DATE: 20150707
